FAERS Safety Report 9858100 (Version 5)
Quarter: 2016Q1

REPORT INFORMATION
  Report Type: Spontaneous
  Country: AR (occurrence: AR)
  Receive Date: 20140131
  Receipt Date: 20160222
  Transmission Date: 20160526
  Serious: Yes (Other)
  Sender: FDA-Public Use
  Company Number: AR-AMGEN-ARGSP2014006567

PATIENT
  Age: 71 Year
  Sex: Female

DRUGS (5)
  1. ENBREL [Suspect]
     Active Substance: ETANERCEPT
     Indication: PSORIASIS
     Dosage: 50 MG, EVERY 2 WEEKS
     Route: 058
     Dates: start: 20090731
  2. ZOLPIDEM HEMITARTRATE [Concomitant]
     Active Substance: ZOLPIDEM\ZOLPIDEM TARTRATE
     Dosage: 10 MG, 1X/DAY
  3. VALIUM [Concomitant]
     Active Substance: DIAZEPAM
     Dosage: 1/2 PILL PER NIGHT
  4. VALSARTAN. [Concomitant]
     Active Substance: VALSARTAN
     Dosage: 40 MG, DAILY
  5. SERTRALINE [Concomitant]
     Active Substance: SERTRALINE HYDROCHLORIDE
     Dosage: 50 MG, 1X/DAY

REACTIONS (9)
  - Pain [Not Recovered/Not Resolved]
  - Condition aggravated [Not Recovered/Not Resolved]
  - Angiopathy [Not Recovered/Not Resolved]
  - Psoriasis [Not Recovered/Not Resolved]
  - Eye disorder [Not Recovered/Not Resolved]
  - Haematoma [Not Recovered/Not Resolved]
  - Eczema [Not Recovered/Not Resolved]
  - Cataract [Not Recovered/Not Resolved]
  - Cerebrovascular accident [Not Recovered/Not Resolved]

NARRATIVE: CASE EVENT DATE: 2013
